FAERS Safety Report 20513110 (Version 3)
Quarter: 2024Q4

REPORT INFORMATION
  Report Type: Report from Study
  Country: US (occurrence: US)
  Receive Date: 20220224
  Receipt Date: 20241105
  Transmission Date: 20250114
  Serious: Yes (Disabling, Other)
  Sender: AMNEAL
  Company Number: US-AMNEAL PHARMACEUTICALS-2021-AMRX-01239

PATIENT
  Age: 78 Year
  Sex: Female

DRUGS (15)
  1. CARBIDOPA\LEVODOPA [Suspect]
     Active Substance: CARBIDOPA\LEVODOPA
     Indication: Product used for unknown indication
     Dosage: 48.75/195, 1 CAPSULES, 4 /DAY
     Route: 048
     Dates: start: 20201221
  2. CARBIDOPA\LEVODOPA [Suspect]
     Active Substance: CARBIDOPA\LEVODOPA
     Dosage: 48.75/195MG, 1 CAPSULES, 3 /DAY
     Route: 048
     Dates: end: 20201221
  3. CARBIDOPA\LEVODOPA [Suspect]
     Active Substance: CARBIDOPA\LEVODOPA
     Dosage: 48.75/195, 1 CAPSULES, 3X/DAY
     Route: 048
  4. CARBIDOPA\LEVODOPA [Suspect]
     Active Substance: CARBIDOPA\LEVODOPA
     Dosage: 61.25-245MG, 1 CAPSULES, 1X/DAY, AT 10 PM
     Route: 048
  5. CARBIDOPA\LEVODOPA [Suspect]
     Active Substance: CARBIDOPA\LEVODOPA
     Dosage: 48.75/195, 1 CAPSULE BY MOUTH EVERY NIGHT AT BEDTIME
     Route: 048
     Dates: start: 20220418
  6. CARBIDOPA\LEVODOPA [Suspect]
     Active Substance: CARBIDOPA\LEVODOPA
     Dosage: 61.25-245 MG TAKE 1 CAPSULE BY MOUTH 03 TIMES A DAY DURING DAYTIME HOURS
     Route: 048
     Dates: start: 20220418
  7. CARBIDOPA\LEVODOPA [Suspect]
     Active Substance: CARBIDOPA\LEVODOPA
     Dosage: 48.75/195, 1 CAPSULE BY MOUTH DAILY
     Route: 048
     Dates: start: 20230207
  8. CARBIDOPA\LEVODOPA [Suspect]
     Active Substance: CARBIDOPA\LEVODOPA
     Dosage: 61.25-245 MG TAKE 1 CAPSULE BY MOUTH 04 TIMES A DAY
     Route: 048
     Dates: start: 20230207
  9. CARBIDOPA\LEVODOPA [Suspect]
     Active Substance: CARBIDOPA\LEVODOPA
     Dosage: 61.25-245 MG TAKE 1 CAPSULE BY MOUTH 03 TIMES A DAY
     Route: 048
     Dates: start: 20230925
  10. CARBIDOPA\LEVODOPA [Suspect]
     Active Substance: CARBIDOPA\LEVODOPA
     Dosage: 61.25-245 MG TAKE 1 CAPSULE BY MOUTH 03 TIMES A DAY
     Route: 048
     Dates: start: 20231002
  11. CARBIDOPA\LEVODOPA [Suspect]
     Active Substance: CARBIDOPA\LEVODOPA
     Dosage: 48.75/195, 1 CAPSULE BY MOUTH EVERY NIGHT AT BEDTIME
     Route: 048
     Dates: start: 20231002
  12. CARBIDOPA\LEVODOPA [Suspect]
     Active Substance: CARBIDOPA\LEVODOPA
     Dosage: 48.75/195, 1 CAPSULE BY MOUTH 03 TIMES A DAY
     Route: 048
     Dates: start: 202310
  13. CARBIDOPA\LEVODOPA [Suspect]
     Active Substance: CARBIDOPA\LEVODOPA
     Dosage: 61.25-245 MG, 01 CAPSULE BY MOUTH EVERY NIGHT
     Route: 048
     Dates: start: 202310
  14. CARBIDOPA\LEVODOPA [Suspect]
     Active Substance: CARBIDOPA\LEVODOPA
     Dosage: 48.75-195 (TAKE 1 CAPSULE BY MOUTH AT BEDTIME) RYTARY 61.25-245MG (TAKE 1 CAPSULE BY MOUTH THREE TIM
     Route: 048
  15. CARBIDOPA\LEVODOPA [Suspect]
     Active Substance: CARBIDOPA\LEVODOPA
     Dosage: 1 CAPSULES (61.25-245 MG), 4 /DAY
     Route: 048

REACTIONS (4)
  - Upper limb fracture [Unknown]
  - Fall [Unknown]
  - Tremor [Unknown]
  - Hallucination [Unknown]

NARRATIVE: CASE EVENT DATE: 20231016
